FAERS Safety Report 6524236-9 (Version None)
Quarter: 2009Q4

REPORT INFORMATION
  Report Type: 
  Country: None (occurrence: None)
  Receive Date: 20091231
  Receipt Date: 20091217
  Transmission Date: 20100525
  Serious: Yes (Other)
  Sender: FDA-Public Use
  Company Number: US-ELI_LILLY_AND_COMPANY-US200912004382

PATIENT
  Sex: Male

DRUGS (10)
  1. HUMALOG [Suspect]
     Indication: DIABETES MELLITUS
     Dosage: 5 U, UNK
  2. HUMALOG [Suspect]
     Dosage: 10 U, UNK
  3. HUMALOG [Suspect]
     Dosage: 12 U, UNK
  4. HUMALOG [Suspect]
     Dosage: 50 U, UNK
  5. CELEBREX [Concomitant]
  6. LANTUS [Concomitant]
  7. AVANDIA [Concomitant]
  8. CARDIZEM [Concomitant]
  9. LASIX [Concomitant]
  10. OXYGEN [Concomitant]

REACTIONS (12)
  - BLOOD GLUCOSE DECREASED [None]
  - BLOOD GLUCOSE INCREASED [None]
  - CARDIAC DISORDER [None]
  - CONFUSIONAL STATE [None]
  - DIZZINESS [None]
  - FALL [None]
  - HYPERTENSION [None]
  - HYPOAESTHESIA [None]
  - NERVOUSNESS [None]
  - SURGERY [None]
  - TRANSIENT ISCHAEMIC ATTACK [None]
  - UPPER LIMB FRACTURE [None]
